FAERS Safety Report 22814795 (Version 3)
Quarter: 2023Q4

REPORT INFORMATION
  Report Type: Report from Study
  Country: US (occurrence: US)
  Receive Date: 20230811
  Receipt Date: 20231220
  Transmission Date: 20240110
  Serious: Yes (Hospitalization, Other)
  Sender: FDA-Public Use
  Company Number: US-ABBVIE-5361041

PATIENT
  Sex: Male
  Weight: 92 kg

DRUGS (2)
  1. SKYRIZI [Suspect]
     Active Substance: RISANKIZUMAB-RZAA
     Indication: Crohn^s disease
     Route: 058
  2. SKYRIZI [Suspect]
     Active Substance: RISANKIZUMAB-RZAA
     Route: 058
     Dates: start: 20230103

REACTIONS (5)
  - Biliary obstruction [Recovered/Resolved]
  - Hepatic haemorrhage [Unknown]
  - Blood triglycerides increased [Not Recovered/Not Resolved]
  - Post procedural complication [Recovered/Resolved]
  - Squamous cell carcinoma of skin [Recovered/Resolved]

NARRATIVE: CASE EVENT DATE: 20230101
